FAERS Safety Report 4314994-6 (Version None)
Quarter: 2004Q1

REPORT INFORMATION
  Report Type: 
  Country: None (occurrence: None)
  Receive Date: 20040309
  Receipt Date: 20040224
  Transmission Date: 20041129
  Serious: Yes (Other)
  Sender: FDA-Public Use
  Company Number: 234802

PATIENT
  Age: 56 Year
  Sex: Male
  Weight: 75 kg

DRUGS (3)
  1. NOVORAPID 30 MIX CHU PENFILL (INSULIN ASPART) SUSPENSION FOR INJECTION [Suspect]
     Indication: DIABETES MELLITUS NON-INSULIN-DEPENDENT
     Dates: start: 20031222, end: 20031225
  2. ALLOPURINOL [Concomitant]
  3. MECOBALAMIN (MECOBALAMIN) [Concomitant]

REACTIONS (6)
  - ASTHENIA [None]
  - DIZZINESS [None]
  - HEARING IMPAIRED [None]
  - MALAISE [None]
  - NAUSEA [None]
  - TINNITUS [None]
